FAERS Safety Report 22158725 (Version 1)
Quarter: 2023Q1

REPORT INFORMATION
  Report Type: Report from Study
  Country: CL (occurrence: CL)
  Receive Date: 20230331
  Receipt Date: 20230331
  Transmission Date: 20230417
  Serious: Yes (Other)
  Sender: FDA-Public Use
  Company Number: CL-BEH-2023156958

PATIENT
  Age: 69 Year
  Sex: Male
  Weight: 73 kg

DRUGS (1)
  1. HIZENTRA [Suspect]
     Active Substance: HUMAN IMMUNOGLOBULIN G
     Indication: Immunodeficiency common variable
     Dosage: UNK
     Route: 058
     Dates: start: 2019

REACTIONS (4)
  - Arthritis [Unknown]
  - Tremor [Unknown]
  - Product use complaint [Unknown]
  - Product use complaint [Unknown]
